FAERS Safety Report 12799451 (Version 1)
Quarter: 2016Q3

REPORT INFORMATION
  Report Type: Spontaneous
  Country: MX (occurrence: MX)
  Receive Date: 20160930
  Receipt Date: 20160930
  Transmission Date: 20161109
  Serious: Yes (Other)
  Sender: FDA-Public Use
  Company Number: MX-JNJFOC-20160924005

PATIENT
  Age: 37 Year
  Sex: Female

DRUGS (2)
  1. REMICADE [Suspect]
     Active Substance: INFLIXIMAB
     Indication: COLITIS ULCERATIVE
     Route: 042
  2. LEVOTHYROXINE. [Concomitant]
     Active Substance: LEVOTHYROXINE
     Indication: HYPERTHYROIDISM
     Route: 065

REACTIONS (5)
  - Tuberculin test positive [Unknown]
  - Colitis ulcerative [Unknown]
  - Exposure during pregnancy [Unknown]
  - Abortion induced [Unknown]
  - Adenocarcinoma of colon [Unknown]

NARRATIVE: CASE EVENT DATE: 2014
